FAERS Safety Report 12962669 (Version 2)
Quarter: 2016Q4

REPORT INFORMATION
  Report Type: Report from Study
  Country: US (occurrence: US)
  Receive Date: 20161121
  Receipt Date: 20161227
  Transmission Date: 20170207
  Serious: Yes (Other)
  Sender: FDA-Public Use
  Company Number: US-AMGEN-USASP2016161303

PATIENT
  Age: 69 Year
  Sex: Female

DRUGS (1)
  1. ENBREL [Suspect]
     Active Substance: ETANERCEPT
     Indication: RHEUMATOID ARTHRITIS
     Dosage: UNK, QWK
     Route: 058

REACTIONS (5)
  - Injury associated with device [Unknown]
  - Laceration [Unknown]
  - Underdose [Unknown]
  - Injection site haemorrhage [Unknown]
  - Foot operation [Unknown]

NARRATIVE: CASE EVENT DATE: 20161215
